FAERS Safety Report 7001497-3 (Version None)
Quarter: 2010Q3

REPORT INFORMATION
  Report Type: 
  Country: None (occurrence: None)
  Receive Date: 20100920
  Receipt Date: 20100907
  Transmission Date: 20110219
  Serious: Yes (Other)
  Sender: FDA-Public Use
  Company Number: US-CELGENEUS-163-20785-10082027

PATIENT
  Sex: Female

DRUGS (4)
  1. THALOMID [Suspect]
     Indication: MULTIPLE MYELOMA
     Route: 048
     Dates: start: 20081001, end: 20081101
  2. THALOMID [Suspect]
     Route: 048
     Dates: start: 20081101
  3. THALOMID [Suspect]
     Route: 048
     Dates: start: 20090201, end: 20090101
  4. DEXAMETHASONE [Concomitant]
     Indication: MULTIPLE MYELOMA
     Route: 065

REACTIONS (2)
  - NAUSEA [None]
  - NEUROPATHY PERIPHERAL [None]
